FAERS Safety Report 7477166-2 (Version None)
Quarter: 2011Q2

REPORT INFORMATION
  Report Type: 
  Country: None (occurrence: None)
  Receive Date: 20110512
  Receipt Date: 20110428
  Transmission Date: 20111010
  Serious: Yes (Other)
  Sender: FDA-Public Use
  Company Number: DE-ELI_LILLY_AND_COMPANY-DE201102003219

PATIENT
  Age: 76 Year
  Sex: Female

DRUGS (4)
  1. FORTEO [Suspect]
     Indication: OSTEOPOROSIS
     Dosage: 20 UG, DAILY (1/D)
     Route: 058
     Dates: start: 20100503
  2. PANTOPRAZOLE [Concomitant]
  3. ANALGESICS [Concomitant]
  4. MTX [Concomitant]

REACTIONS (8)
  - GENERAL PHYSICAL HEALTH DETERIORATION [None]
  - MALAISE [None]
  - CATARACT [None]
  - FATIGUE [None]
  - VISUAL IMPAIRMENT [None]
  - SPINAL FRACTURE [None]
  - APHASIA [None]
  - APATHY [None]
